FAERS Safety Report 5612775-4 (Version None)
Quarter: 2008Q1

REPORT INFORMATION
  Report Type: 
  Country: None (occurrence: None)
  Receive Date: 20080129
  Receipt Date: 20080122
  Transmission Date: 20080703
  Serious: Yes (Other)
  Sender: FDA-Public Use
  Company Number: S08-USA-00272-01

PATIENT

DRUGS (6)
  1. CELEXA [Suspect]
     Indication: DEPRESSION
  2. MS CONTIN [Concomitant]
  3. PHENAZOPYRIDINE HCL TAB [Concomitant]
  4. BUFFERIN [Concomitant]
  5. EVISTA [Concomitant]
  6. METHYLPHENIDATE HCL [Concomitant]

REACTIONS (1)
  - NORMOCHROMIC NORMOCYTIC ANAEMIA [None]
